FAERS Safety Report 11837515 (Version 1)
Quarter: 2015Q4

REPORT INFORMATION
  Report Type: Spontaneous
  Country: US (occurrence: US)
  Receive Date: 20151215
  Receipt Date: 20151215
  Transmission Date: 20160305
  Serious: Yes (Other)
  Sender: FDA-Public Use
  Company Number: US-NOVOPROD-468619

PATIENT
  Age: 56 Year
  Sex: Male

DRUGS (7)
  1. SIMVASTATIN. [Concomitant]
     Active Substance: SIMVASTATIN
     Indication: PRODUCT USED FOR UNKNOWN INDICATION
     Route: 048
  2. HUMALOG MIX75/25 [Suspect]
     Active Substance: INSULIN LISPRO
     Indication: INSULIN-REQUIRING TYPE 2 DIABETES MELLITUS
     Dosage: 30 UNITS
     Route: 058
  3. METFORMIN [Concomitant]
     Active Substance: METFORMIN HYDROCHLORIDE
     Indication: INSULIN-REQUIRING TYPE 2 DIABETES MELLITUS
     Route: 048
  4. AMLODIPINE [Concomitant]
     Active Substance: AMLODIPINE BESYLATE
     Indication: PRODUCT USED FOR UNKNOWN INDICATION
     Route: 048
  5. TOUJEO [Suspect]
     Active Substance: INSULIN GLARGINE
     Indication: INSULIN-REQUIRING TYPE 2 DIABETES MELLITUS
     Route: 058
  6. EPIPEN [Concomitant]
     Active Substance: EPINEPHRINE
     Indication: EMERGENCY CARE
     Route: 058
  7. NOVOLIN R [Suspect]
     Active Substance: INSULIN HUMAN
     Indication: INSULIN-REQUIRING TYPE 2 DIABETES MELLITUS
     Dosage: 28 U, TOTAL DAILY DOSE, BEFORE MAIN MEALS
     Route: 058

REACTIONS (1)
  - Drug hypersensitivity [Not Recovered/Not Resolved]
